FAERS Safety Report 25551121 (Version 3)
Quarter: 2025Q3

REPORT INFORMATION
  Report Type: Spontaneous
  Country: JP (occurrence: JP)
  Receive Date: 20250714
  Receipt Date: 20250801
  Transmission Date: 20251021
  Serious: Yes (Hospitalization, Other)
  Sender: KYOWA
  Company Number: JP-KYOWAKIRIN-2025KK013451

PATIENT

DRUGS (2)
  1. CRYSVITA [Suspect]
     Active Substance: BUROSUMAB-TWZA
     Indication: Hypophosphataemic osteomalacia
     Dosage: 40 MG, 1X/4 WEEKS
     Route: 058
     Dates: start: 202105, end: 20250614
  2. CALONAL [Concomitant]
     Active Substance: ACETAMINOPHEN
     Indication: Product used for unknown indication
     Dosage: 300 MG, QD
     Route: 048
     Dates: end: 20250614

REACTIONS (2)
  - Lung neoplasm malignant [Unknown]
  - Hypophosphataemic osteomalacia [Unknown]
